FAERS Safety Report 7422061-8 (Version None)
Quarter: 2011Q2

REPORT INFORMATION
  Report Type: 
  Country: None (occurrence: None)
  Receive Date: 20110418
  Receipt Date: 20110411
  Transmission Date: 20111010
  Serious: Yes (Hospitalization)
  Sender: FDA-Public Use
  Company Number: FR-B.I. PHARMACEUTICALS,INC./RIDGEFIELD-2011-FF-00321FF

PATIENT
  Sex: Male

DRUGS (2)
  1. VIRAMUNE [Suspect]
     Indication: HIV INFECTION
     Dosage: 200 MG
     Route: 048
     Dates: start: 20110120, end: 20110129
  2. TRUVADA [Suspect]
     Indication: HIV INFECTION
     Route: 048
     Dates: start: 20110120, end: 20110129

REACTIONS (7)
  - ASTHENIA [None]
  - DELIRIUM [None]
  - INFLAMMATION [None]
  - PRURITUS [None]
  - PYREXIA [None]
  - DERMATITIS EXFOLIATIVE [None]
  - VOMITING [None]
